FAERS Safety Report 6959332-5 (Version None)
Quarter: 2010Q3

REPORT INFORMATION
  Report Type: 
  Country: None (occurrence: None)
  Receive Date: 20100831
  Receipt Date: 20100818
  Transmission Date: 20110219
  Serious: Yes (Other)
  Sender: FDA-Public Use
  Company Number: PHHY2010CA36033

PATIENT
  Sex: Male

DRUGS (13)
  1. CLOZARIL [Suspect]
     Indication: SCHIZOPHRENIA
     Dosage: UNK
     Dates: start: 20091201, end: 20100813
  2. CLOZARIL [Suspect]
     Dosage: 300 MG ACTUALLY PER OS
     Dates: start: 20100101
  3. LOPRESSOR [Suspect]
     Dosage: 25 BID
  4. ASPIRIN [Concomitant]
     Indication: ATRIAL FIBRILLATION
     Dosage: UNK
     Dates: start: 20070101
  5. TOPAMAX [Concomitant]
  6. METOPROLOL TARTRATE [Concomitant]
     Indication: ATRIAL FIBRILLATION
     Dosage: 25 MG, BID
     Dates: start: 20070101
  7. FLORINEF [Concomitant]
     Indication: HYPOTENSION
     Dosage: 0.1 HALF A TABLET WHEN SYMPTOMS START
  8. LANOXIN [Concomitant]
     Dosage: 0.125 1 TABLETS  X 02/09
  9. LANOXIN [Concomitant]
     Dosage: 0.125 2 TABLETS 3/5 DAY
  10. LANOXIN [Concomitant]
     Dosage: 1 .5 TABS 4/7 DAYS
  11. ACTONEL [Concomitant]
     Indication: OSTEOPOROSIS
     Dosage: UNK
     Dates: start: 20020101
  12. CALCIUM [Concomitant]
     Indication: OSTEOPOROSIS
     Dosage: UNK
     Dates: start: 20020101
  13. COGENTIN [Concomitant]

REACTIONS (11)
  - ATRIAL FIBRILLATION [None]
  - CONDITION AGGRAVATED [None]
  - HAEMATOCRIT DECREASED [None]
  - HAEMOGLOBIN DECREASED [None]
  - HEPATIC CIRRHOSIS [None]
  - HEPATITIS C [None]
  - NEUTROPHIL COUNT DECREASED [None]
  - ORTHOSTATIC HYPOTENSION [None]
  - RED BLOOD CELL COUNT DECREASED [None]
  - THROMBOCYTOPENIA [None]
  - WHITE BLOOD CELL COUNT DECREASED [None]
